FAERS Safety Report 5019085-7 (Version None)
Quarter: 2006Q2

REPORT INFORMATION
  Report Type: 
  Country: None (occurrence: None)
  Receive Date: 20060606
  Receipt Date: 20060223
  Transmission Date: 20061013
  Serious: Yes (Other)
  Sender: FDA-Public Use
  Company Number: JP-MERCK-0603USA01927

PATIENT
  Age: 36 Year
  Sex: Male

DRUGS (1)
  1. PROPECIA [Suspect]
     Route: 048
     Dates: start: 20060101

REACTIONS (2)
  - LIBIDO DECREASED [None]
  - POLLAKIURIA [None]
